FAERS Safety Report 4536128-5 (Version None)
Quarter: 2004Q4

REPORT INFORMATION
  Report Type: 
  Country: None (occurrence: None)
  Receive Date: 20041220
  Receipt Date: 20041209
  Transmission Date: 20050328
  Serious: Yes (Hospitalization, Other)
  Sender: FDA-Public Use
  Company Number: 2004108088

PATIENT
  Age: 63 Year
  Sex: Male
  Weight: 98.8842 kg

DRUGS (6)
  1. ACCUPRIL [Suspect]
     Indication: HYPERTENSION
     Dosage: 40 MG (40 MG, 1 IN 1 D), ORAL
     Route: 048
  2. IMATINIB MESILATE (IMATINIB MESILATE) [Suspect]
     Indication: CHRONIC MYELOID LEUKAEMIA
     Dates: start: 20040101
  3. SOTALOL HCL [Concomitant]
  4. ASPIRIN [Concomitant]
  5. VITAMINS (VITAMINS) [Concomitant]
  6. DILTIAZEM HYDROCHLORIDE [Concomitant]

REACTIONS (5)
  - ARRHYTHMIA [None]
  - BLOOD HOMOCYSTEINE INCREASED [None]
  - BLOOD PRESSURE INADEQUATELY CONTROLLED [None]
  - CHRONIC MYELOID LEUKAEMIA [None]
  - TREATMENT NONCOMPLIANCE [None]
